FAERS Safety Report 9821061 (Version 1)
Quarter: 2013Q4

REPORT INFORMATION
  Report Type: Spontaneous
  Country: US (occurrence: None)
  Receive Date: 20131028
  Receipt Date: 20131028
  Transmission Date: 20140711
  Serious: Yes (Other)
  Sender: FDA-Public Use
  Company Number: 2013US001705

PATIENT
  Age: 40 Year
  Sex: Female
  Weight: 80.02 kg

DRUGS (7)
  1. ICLUSIG (PONATINIB) TABLET, 45MG [Suspect]
     Indication: CHRONIC MYELOID LEUKAEMIA
     Route: 048
     Dates: start: 20130517, end: 20130521
  2. ALLEGRA [Concomitant]
  3. ATIVAN (LORAZEPAM) [Concomitant]
  4. BIOTIN (BIOTIN) [Concomitant]
  5. LORTAB (HYDROCODONE BITARTRATE, PARACETAMOL)) [Concomitant]
  6. SINGULAIR [Concomitant]
  7. TRIVORA-28 (ETHINYLESTRADIOL, LEVONORGESTREL) [Concomitant]

REACTIONS (1)
  - Lipase increased [None]
